FAERS Safety Report 5820465-8 (Version None)
Quarter: 2008Q3

REPORT INFORMATION
  Report Type: 
  Country: None (occurrence: None)
  Receive Date: 20080717
  Receipt Date: 20080711
  Transmission Date: 20090109
  Serious: Yes (Other)
  Sender: FDA-Public Use
  Company Number: 2008BI012530

PATIENT
  Age: 70 Year
  Sex: Female
  Weight: 69.4003 kg

DRUGS (2)
  1. AVONEX [Suspect]
     Indication: MULTIPLE SCLEROSIS
     Dosage: 30 UG;QW;IM, 30 UG;QW;IM, 30 UG;  ;IM
     Route: 030
     Dates: start: 20010101, end: 20030101
  2. AVONEX [Suspect]
     Indication: MULTIPLE SCLEROSIS
     Dosage: 30 UG;QW;IM, 30 UG;QW;IM, 30 UG;  ;IM
     Route: 030
     Dates: start: 20030101, end: 20070801

REACTIONS (4)
  - CHEST PAIN [None]
  - HODGKIN'S DISEASE [None]
  - NERVOUS SYSTEM DISORDER [None]
  - NONSPECIFIC REACTION [None]
